FAERS Safety Report 18529301 (Version 1)
Quarter: 2020Q4

REPORT INFORMATION
  Report Type: Spontaneous
  Country: DE (occurrence: DE)
  Receive Date: 20201120
  Receipt Date: 20201120
  Transmission Date: 20210114
  Serious: Yes (Congenital Anomaly)
  Sender: FDA-Public Use
  Company Number: DE-ALLERGAN-2044771US

PATIENT
  Sex: Female
  Weight: 3.94 kg

DRUGS (6)
  1. FOLIC ACID. [Suspect]
     Active Substance: FOLIC ACID
     Indication: FOETAL EXPOSURE DURING PREGNANCY
     Dosage: 0.8 MG, QD
     Route: 064
     Dates: start: 20190822, end: 20190930
  2. FOSFOMYCIN TROMETHAMINE - BP [Suspect]
     Active Substance: FOSFOMYCIN TROMETHAMINE
     Indication: FOETAL EXPOSURE DURING PREGNANCY
     Dosage: 3000 MG, SINGLE
     Route: 064
     Dates: start: 20191016, end: 20191016
  3. UTROGEST [Suspect]
     Active Substance: PROGESTERONE
     Indication: FOETAL EXPOSURE DURING PREGNANCY
     Dosage: 300 MG, QD
     Route: 064
     Dates: start: 20191025, end: 20191108
  4. INFLUSPLIT TETRA [Suspect]
     Active Substance: INFLUENZA VIRUS VACCINE
     Indication: FOETAL EXPOSURE DURING PREGNANCY
     Dosage: UNK
     Route: 064
     Dates: start: 20191209, end: 20191209
  5. MOLEVAC [Suspect]
     Active Substance: PYRVINIUM
     Indication: FOETAL EXPOSURE DURING PREGNANCY
     Dosage: 300 MG, QD
     Route: 064
     Dates: start: 20190828, end: 20190828
  6. VERMOX [Suspect]
     Active Substance: MEBENDAZOLE
     Indication: FOETAL EXPOSURE DURING PREGNANCY
     Dosage: 100 [MG/D]
     Route: 064
     Dates: start: 20191001, end: 20191017

REACTIONS (3)
  - Atrioventricular septal defect [Unknown]
  - Patent ductus arteriosus [Recovered/Resolved]
  - Pregnancy [Unknown]
